FAERS Safety Report 16958409 (Version 1)
Quarter: 2019Q4

REPORT INFORMATION
  Report Type: Spontaneous
  Country: TR (occurrence: TR)
  Receive Date: 20191024
  Receipt Date: 20191024
  Transmission Date: 20200122
  Serious: Yes (Other)
  Sender: FDA-Public Use
  Company Number: NVSC2019TR009442

PATIENT
  Sex: Female

DRUGS (9)
  1. AMIKACIN. [Suspect]
     Active Substance: AMIKACIN
     Indication: DISSEMINATED TUBERCULOSIS
     Dosage: 1 G, QH
     Route: 065
  2. ETHAMBUTOL [Suspect]
     Active Substance: ETHAMBUTOL HYDROCHLORIDE
     Indication: DISSEMINATED TUBERCULOSIS
     Dosage: 1500 MG
     Route: 065
  3. MOXIFLOXACIN. [Suspect]
     Active Substance: MOXIFLOXACIN
     Indication: DISSEMINATED TUBERCULOSIS
     Dosage: 400 MG
     Route: 065
  4. METHYLPREDNISOLONE. [Suspect]
     Active Substance: METHYLPREDNISOLONE
     Indication: DISSEMINATED TUBERCULOSIS
     Dosage: UNK
     Route: 065
  5. CYCLOSERINE. [Suspect]
     Active Substance: CYCLOSERINE
     Indication: DISSEMINATED TUBERCULOSIS
     Dosage: 750 MG
     Route: 065
  6. BIOGENERICS PYRAZINAMIDE [Suspect]
     Active Substance: PYRAZINAMIDE
     Indication: DISSEMINATED TUBERCULOSIS
     Dosage: 2000 MG
     Route: 065
  7. 4-AMINOSALICYLIC ACID [Suspect]
     Active Substance: AMINOSALICYLIC ACID
     Dosage: 8 G
     Route: 065
  8. ETHIONAMIDE [Suspect]
     Active Substance: ETHIONAMIDE
     Indication: DISSEMINATED TUBERCULOSIS
     Dosage: 750 MG
     Route: 065
  9. 4-AMINOSALICYLIC ACID [Suspect]
     Active Substance: AMINOSALICYLIC ACID
     Indication: DISSEMINATED TUBERCULOSIS
     Dosage: 9 G
     Route: 065

REACTIONS (5)
  - Muscle contractions involuntary [Unknown]
  - Product use in unapproved indication [Unknown]
  - Rash pruritic [Recovered/Resolved]
  - Altered state of consciousness [Unknown]
  - General physical health deterioration [Unknown]
